FAERS Safety Report 7101700-5 (Version None)
Quarter: 2010Q4

REPORT INFORMATION
  Report Type: 
  Country: None (occurrence: None)
  Receive Date: 20101108
  Receipt Date: 20101027
  Transmission Date: 20110411
  Serious: Yes (Hospitalization, Other)
  Sender: FDA-Public Use
  Company Number: 20109556

PATIENT
  Sex: Male

DRUGS (1)
  1. LIORESAL [Suspect]
     Indication: MUSCLE SPASTICITY
     Dosage: SEE B5 (475 MCG, DAILY, INTRATHECAL)
     Route: 037

REACTIONS (5)
  - COLLAPSE OF LUNG [None]
  - DEVICE POWER SOURCE ISSUE [None]
  - DRUG EFFECT DECREASED [None]
  - MUSCLE SPASTICITY [None]
  - PNEUMONIA [None]
